FAERS Safety Report 23063902 (Version 2)
Quarter: 2023Q4

REPORT INFORMATION
  Report Type: Spontaneous
  Country: GB (occurrence: None)
  Receive Date: 20231013
  Receipt Date: 20231220
  Transmission Date: 20240109
  Serious: Yes (Other)
  Sender: FDA-Public Use
  Company Number: 2023A227878

PATIENT
  Age: 28389 Day
  Sex: Female
  Weight: 73 kg

DRUGS (1)
  1. FASENRA [Suspect]
     Active Substance: BENRALIZUMAB
     Indication: Asthma
     Route: 058
     Dates: start: 202303

REACTIONS (1)
  - Melanoma recurrent [Unknown]

NARRATIVE: CASE EVENT DATE: 20231026
